FAERS Safety Report 19205924 (Version 5)
Quarter: 2022Q1

REPORT INFORMATION
  Report Type: Spontaneous
  Country: CA (occurrence: CA)
  Receive Date: 20210503
  Receipt Date: 20220120
  Transmission Date: 20220423
  Serious: Yes (Hospitalization, Other)
  Sender: FDA-Public Use
  Company Number: CA-PFIZER INC-2019352491

PATIENT
  Age: 80 Year
  Sex: Female

DRUGS (11)
  1. SOMATROPIN [Suspect]
     Active Substance: SOMATROPIN
     Indication: Growth hormone deficiency
     Dosage: 0.1 MG, DAILY
     Route: 058
     Dates: start: 20190808
  2. SOMATROPIN [Suspect]
     Active Substance: SOMATROPIN
     Dosage: 100 UG, DAILY
     Route: 058
     Dates: start: 20210808
  3. AMLODIPINE [Concomitant]
     Active Substance: AMLODIPINE BESYLATE
     Indication: Hypertension
     Dosage: 2.5 MG, UNK
     Route: 048
     Dates: start: 2018, end: 2019
  4. ASPIRIN [Concomitant]
     Active Substance: ASPIRIN
     Indication: Intracardiac thrombus
     Dosage: 80 MG, 1X/DAY
     Route: 048
     Dates: start: 1995
  5. CALCIUM\ERGOCALCIFEROL [Concomitant]
     Active Substance: CALCIUM\ERGOCALCIFEROL
     Dosage: 500 MG / 800 UNITS DAILY
     Route: 048
  6. CORTEF [Concomitant]
     Active Substance: HYDROCORTISONE
     Indication: Blood pressure measurement
     Dosage: 10 MG AM, 2.5 MG PM (AT NIGHT)
     Route: 048
     Dates: start: 2012, end: 20171226
  7. CORTEF [Concomitant]
     Active Substance: HYDROCORTISONE
     Dosage: 10 MG AM (AT MORNING)
     Route: 048
     Dates: start: 20171226
  8. CORTEF [Concomitant]
     Active Substance: HYDROCORTISONE
     Dosage: UNK
     Route: 048
  9. SIMVASTATIN [Concomitant]
     Active Substance: SIMVASTATIN
     Dosage: 40 MG, DAILY
     Route: 048
  10. SYNTHROID [Concomitant]
     Active Substance: LEVOTHYROXINE SODIUM
     Dosage: 0.100 MG, DAILY
     Route: 048
  11. VITAMIN B12 [Concomitant]
     Active Substance: CYANOCOBALAMIN
     Dosage: 1200 UG, DAILY
     Route: 048

REACTIONS (9)
  - Urinary tract infection [Unknown]
  - Pyrexia [Unknown]
  - Bladder prolapse [Not Recovered/Not Resolved]
  - Kidney infection [Unknown]
  - Therapeutic response unexpected [Unknown]
  - Pre-existing condition improved [Unknown]
  - COVID-19 [Unknown]
  - Drug dose omission by device [Unknown]
  - Headache [Recovered/Resolved]

NARRATIVE: CASE EVENT DATE: 20190808
